FAERS Safety Report 4392445-3 (Version None)
Quarter: 2004Q3

REPORT INFORMATION
  Report Type: 
  Country: None (occurrence: None)
  Receive Date: 20040702
  Receipt Date: 20040310
  Transmission Date: 20050211
  Serious: Yes (Other)
  Sender: FDA-Public Use
  Company Number: 2004UW04542

PATIENT
  Age: 67 Year
  Sex: Male
  Weight: 68.0396 kg

DRUGS (4)
  1. CRESTOR [Suspect]
     Indication: BLOOD CHOLESTEROL
     Dosage: 10 MG DAILY PO
     Route: 048
     Dates: start: 20040101
  2. PLETAL [Concomitant]
  3. FLOMAX [Concomitant]
  4. TRIAMTERENE AND HYDROCHLOROTHIAZID [Concomitant]

REACTIONS (2)
  - CONSTIPATION [None]
  - ERECTILE DYSFUNCTION [None]
